FAERS Safety Report 6233916-4 (Version None)
Quarter: 2009Q2

REPORT INFORMATION
  Report Type: 
  Country: None (occurrence: None)
  Receive Date: 20090618
  Receipt Date: 20090608
  Transmission Date: 20091009
  Serious: Yes (Hospitalization, Other)
  Sender: FDA-Public Use
  Company Number: PHHY2008FR31805

PATIENT
  Sex: Female
  Weight: 50 kg

DRUGS (2)
  1. EXELON [Suspect]
     Indication: DEMENTIA
     Dosage: 9.5 MG/24 H
     Route: 062
     Dates: start: 20081205, end: 20081207
  2. EXELON [Suspect]
     Dosage: 6 MG, BID
     Route: 048
     Dates: start: 20060501, end: 20081204

REACTIONS (7)
  - AMNESIA [None]
  - ASTHENIA [None]
  - DEPRESSED LEVEL OF CONSCIOUSNESS [None]
  - EPILEPSY [None]
  - FALL [None]
  - RIB FRACTURE [None]
  - SOMNOLENCE [None]
